FAERS Safety Report 8999675 (Version 1)
Quarter: 2013Q1

REPORT INFORMATION
  Report Type: Spontaneous
  Country: US (occurrence: US)
  Receive Date: 20130102
  Receipt Date: 20130102
  Transmission Date: 20140127
  Serious: No
  Sender: FDA-Public Use
  Company Number: US-PFIZER INC-2012331745

PATIENT
  Age: 57 Year
  Sex: Female
  Weight: 71.6 kg

DRUGS (3)
  1. ALDACTONE [Suspect]
     Indication: OVARIAN DISORDER
     Dosage: UNK
     Dates: start: 2012, end: 201211
  2. ALDACTAZIDE [Suspect]
     Dosage: 25/25 MG, 4X/DAY
     Route: 048
     Dates: start: 201211, end: 201212
  3. XANAX [Concomitant]
     Dosage: 0.25 MG, 2X/DAY

REACTIONS (5)
  - Drug dispensing error [Unknown]
  - Wrong drug administered [Unknown]
  - Malaise [Recovered/Resolved]
  - Muscle spasms [Recovered/Resolved]
  - Dehydration [Recovered/Resolved]
